FAERS Safety Report 7931176-7 (Version None)
Quarter: 2011Q4

REPORT INFORMATION
  Report Type: 
  Country: None (occurrence: None)
  Receive Date: 20111121
  Receipt Date: 20111112
  Transmission Date: 20120403
  Serious: Yes (Hospitalization)
  Sender: FDA-Public Use
  Company Number: JP-ELI_LILLY_AND_COMPANY-JP201109003020

PATIENT
  Age: 75 Year
  Sex: Female

DRUGS (4)
  1. FORTEO [Suspect]
     Dosage: UNK
     Route: 058
     Dates: end: 20101222
  2. FORTEO [Suspect]
     Dosage: UNK
     Route: 058
     Dates: end: 20110201
  3. FORTEO [Suspect]
     Dosage: UNK
     Route: 058
     Dates: end: 20110401
  4. FORTEO [Suspect]
     Dosage: UNK
     Route: 058
     Dates: end: 20111001

REACTIONS (6)
  - ARTERIAL STENT INSERTION [None]
  - HEADACHE [None]
  - FALL [None]
  - HYPOAESTHESIA [None]
  - ABDOMINAL PAIN [None]
  - WRIST FRACTURE [None]
